FAERS Safety Report 25380192 (Version 1)
Quarter: 2025Q2

REPORT INFORMATION
  Report Type: Spontaneous
  Country: US (occurrence: US)
  Receive Date: 20250530
  Receipt Date: 20250530
  Transmission Date: 20250716
  Serious: Yes (Other)
  Sender: COOPERSURGICAL
  Company Number: US-COOPERSURGICAL, INC.-2025CPS004265

PATIENT
  Age: 42 Year
  Sex: Female
  Weight: 78.458 kg

DRUGS (6)
  1. PARAGARD T 380A [Suspect]
     Active Substance: COPPER
     Route: 015
     Dates: start: 20090609
  2. FERROUS GLUCONATE [Concomitant]
     Active Substance: FERROUS GLUCONATE
  3. KEFLEX [Concomitant]
     Active Substance: CEPHALEXIN
  4. METRONIDAZOLE [Concomitant]
     Active Substance: METRONIDAZOLE
  5. ONDANSETRON [Concomitant]
     Active Substance: ONDANSETRON
  6. TRAMADOL [Concomitant]
     Active Substance: TRAMADOL

REACTIONS (9)
  - Uterine leiomyoma [Unknown]
  - Device breakage [Not Recovered/Not Resolved]
  - Foreign body in reproductive tract [Not Recovered/Not Resolved]
  - Complication of device removal [Not Recovered/Not Resolved]
  - Carbohydrate antigen 125 increased [Unknown]
  - Emotional disorder [Unknown]
  - Infection [Not Recovered/Not Resolved]
  - Abdominal pain [Unknown]
  - Device dislocation [Not Recovered/Not Resolved]

NARRATIVE: CASE EVENT DATE: 20190320
